FAERS Safety Report 7714506-0 (Version None)
Quarter: 2011Q3

REPORT INFORMATION
  Report Type: 
  Country: None (occurrence: None)
  Receive Date: 20110829
  Receipt Date: 20110819
  Transmission Date: 20111222
  Serious: Yes (Hospitalization)
  Sender: FDA-Public Use
  Company Number: FR-JNJFOC-20110810682

PATIENT
  Sex: Male

DRUGS (1)
  1. DURAGESIC-100 [Suspect]
     Indication: PAIN
     Route: 062
     Dates: start: 20110514, end: 20110514

REACTIONS (4)
  - GASTROINTESTINAL DISORDER [None]
  - RESPIRATORY DEPRESSION [None]
  - NAUSEA [None]
  - VOMITING [None]
